FAERS Safety Report 15739820 (Version 1)
Quarter: 2018Q4

REPORT INFORMATION
  Report Type: Spontaneous
  Country: US (occurrence: US)
  Receive Date: 20181204
  Receipt Date: 20181204
  Transmission Date: 20190205
  Serious: Yes (Hospitalization)
  Sender: FDA-Public Use
  Company Number: None

PATIENT
  Sex: Female

DRUGS (13)
  1. MELOXICAM 7.5MG [Concomitant]
     Active Substance: MELOXICAM
  2. NASONEX 50MCG [Concomitant]
  3. PRILOXEC 20MG [Concomitant]
  4. SINGULAIR [Concomitant]
     Active Substance: MONTELUKAST SODIUM
  5. HUMIRA [Suspect]
     Active Substance: ADALIMUMAB
     Indication: ANKYLOSING SPONDYLITIS
     Dosage: ?          OTHER FREQUENCY:EVERY TWO WEEKS;?
     Route: 058
     Dates: start: 20071120
  6. TRAMADOL 50MG [Concomitant]
     Active Substance: TRAMADOL
  7. HUMIRA [Suspect]
     Active Substance: ADALIMUMAB
     Indication: RHEUMATOID ARTHRITIS
     Dosage: ?          OTHER FREQUENCY:EVERY TWO WEEKS;?
     Route: 058
     Dates: start: 20071120
  8. FLEXERIL [Concomitant]
     Active Substance: CYCLOBENZAPRINE HYDROCHLORIDE
  9. NORETHIN 50MG [Concomitant]
  10. LEVOTHYROXIN 100MCG [Concomitant]
  11. LISINOPRIL. [Concomitant]
     Active Substance: LISINOPRIL
  12. MIRAPEX 0.5MG [Concomitant]
  13. PREDNISONE 5MG [Concomitant]
     Active Substance: PREDNISONE

REACTIONS (1)
  - Nasal operation [None]
